FAERS Safety Report 16038892 (Version 1)
Quarter: 2019Q1

REPORT INFORMATION
  Report Type: Spontaneous
  Country: GB (occurrence: GB)
  Receive Date: 20190306
  Receipt Date: 20190306
  Transmission Date: 20190418
  Serious: Yes (Disabling)
  Sender: FDA-Public Use
  Company Number: PHHY2019GB046922

PATIENT
  Age: 75 Year
  Sex: Male
  Weight: 80 kg

DRUGS (5)
  1. RAMIPRIL. [Concomitant]
     Active Substance: RAMIPRIL
     Indication: PRODUCT USED FOR UNKNOWN INDICATION
     Dosage: 1 DF (UG/LITRE), QD
     Route: 065
     Dates: start: 20180430
  2. HYDROCORTISONE. [Concomitant]
     Active Substance: HYDROCORTISONE
     Dosage: 2 DF (UG/LITRE), QD (APPLY)
     Route: 065
     Dates: start: 20190121
  3. LERCANIDIPINE HYDROCHLORIDE [Concomitant]
     Active Substance: LERCANIDIPINE HYDROCHLORIDE
     Indication: PRODUCT USED FOR UNKNOWN INDICATION
     Dosage: 1 DF (UG/LITRE), QD
     Route: 065
     Dates: start: 20150716
  4. EZETIMIBE. [Suspect]
     Active Substance: EZETIMIBE
     Indication: PRODUCT USED FOR UNKNOWN INDICATION
     Dosage: 10 MG, QD
     Route: 065
     Dates: start: 20190128
  5. HYDROCORTISONE. [Concomitant]
     Active Substance: HYDROCORTISONE
     Indication: PRODUCT USED FOR UNKNOWN INDICATION
     Dosage: 2 DF (UG/LITRE), QD (APPLY)
     Route: 065
     Dates: start: 20190114

REACTIONS (5)
  - Tremor [Recovered/Resolved]
  - Back pain [Recovered/Resolved]
  - Feeling cold [Recovered/Resolved]
  - Chromaturia [Recovered/Resolved]
  - Nocturia [Recovered/Resolved]
